FAERS Safety Report 13727139 (Version 2)
Quarter: 2017Q3

REPORT INFORMATION
  Report Type: Report from Study
  Country: US (occurrence: BR)
  Receive Date: 20170707
  Receipt Date: 20170829
  Transmission Date: 20171127
  Serious: Yes (Death, Hospitalization, Other)
  Sender: FDA-Public Use
  Company Number: US-SUNOVION-2017SUN002854

PATIENT
  Sex: Female

DRUGS (1)
  1. GLYCOPYRROLATE. [Suspect]
     Active Substance: GLYCOPYRROLATE
     Indication: EMPHYSEMA
     Dosage: UNKNOWN
     Route: 055

REACTIONS (5)
  - Urinary tract infection [Fatal]
  - Infection [Fatal]
  - Emphysema [Fatal]
  - Disorientation [Unknown]
  - Gait inability [Unknown]
